FAERS Safety Report 15579089 (Version 6)
Quarter: 2019Q1

REPORT INFORMATION
  Report Type: Report from Study
  Country: BR (occurrence: BR)
  Receive Date: 20181102
  Receipt Date: 20190205
  Transmission Date: 20190417
  Serious: Yes (Other)
  Sender: FDA-Public Use
  Company Number: BR-SAKK-2018SA296838AA

PATIENT
  Sex: Male
  Weight: 94 kg

DRUGS (6)
  1. INSULIN GLARGINE [Suspect]
     Active Substance: INSULIN GLARGINE
     Dosage: 30 IU, TID
     Dates: start: 2008
  2. JARDIANCE [Concomitant]
     Active Substance: EMPAGLIFLOZIN
     Indication: DIABETES MELLITUS
     Dosage: UNK UNK, AT LUNCH
     Route: 048
  3. METFORMIN [Concomitant]
     Active Substance: METFORMIN HYDROCHLORIDE
     Indication: TYPE 2 DIABETES MELLITUS
     Dosage: ONE TABLET AT LUNCH AND ONE AT DINNER
     Route: 048
     Dates: start: 201811
  4. INSULIN GLARGINE [Suspect]
     Active Substance: INSULIN GLARGINE
     Indication: TYPE 2 DIABETES MELLITUS
     Dosage: 30 IU, QD
     Route: 058
  5. APIDRA [Concomitant]
     Active Substance: INSULIN GLULISINE
     Indication: DIABETES MELLITUS
     Dosage: 6IU IN THE MORNING + 10IU AT LUNCH + 10IU AT NIGHT, TID
     Route: 058
     Dates: start: 201809
  6. GLIFAGE [Concomitant]
     Active Substance: METFORMIN HYDROCHLORIDE
     Dosage: 1 TABLET AT LUNCH AND 1 TABLET IN THE DINNER
     Dates: start: 201812

REACTIONS (9)
  - Cataract diabetic [Recovering/Resolving]
  - Blood insulin decreased [Recovered/Resolved]
  - Injection site pain [Recovering/Resolving]
  - Dizziness [Recovered/Resolved]
  - Blood glucose abnormal [Unknown]
  - Injection site mass [Recovering/Resolving]
  - Device issue [Unknown]
  - Product use issue [Unknown]
  - Injection site haemorrhage [Recovering/Resolving]
